FAERS Safety Report 9829740 (Version 3)
Quarter: 2014Q2

REPORT INFORMATION
  Report Type: Spontaneous
  Country: SE (occurrence: SE)
  Receive Date: 20140120
  Receipt Date: 20140409
  Transmission Date: 20141212
  Serious: Yes (Other)
  Sender: FDA-Public Use
  Company Number: SE-BRISTOL-MYERS SQUIBB COMPANY-20026241

PATIENT
  Age: 57 Year
  Sex: Female

DRUGS (2)
  1. ABATACEPT SUBQ INJECTION 125MG/ML [Suspect]
     Indication: RHEUMATOID ARTHRITIS
     Route: 058
     Dates: start: 20130907, end: 20130907
  2. METHOTREXATE [Concomitant]

REACTIONS (5)
  - Arthralgia [Recovered/Resolved]
  - Pyrexia [Recovered/Resolved]
  - Dysphonia [Recovered/Resolved]
  - Oropharyngeal pain [Recovered/Resolved]
  - Paraesthesia [Recovered/Resolved]
